FAERS Safety Report 25661200 (Version 1)
Quarter: 2025Q3

REPORT INFORMATION
  Report Type: Report from Study
  Country: CA (occurrence: CA)
  Receive Date: 20250808
  Receipt Date: 20250808
  Transmission Date: 20251021
  Serious: Yes (Other)
  Sender: TAKEDA
  Company Number: CA-TAKEDA-2023TUS081670

PATIENT
  Sex: Female

DRUGS (3)
  1. VEDOLIZUMAB [Suspect]
     Active Substance: VEDOLIZUMAB
     Indication: Crohn^s disease
  2. VEDOLIZUMAB [Suspect]
     Active Substance: VEDOLIZUMAB
     Indication: Crohn^s disease
     Dosage: 108 MILLIGRAM, Q2WEEKS
     Dates: start: 20220831
  3. ASACOL [Concomitant]
     Active Substance: MESALAMINE

REACTIONS (10)
  - Uveitis [Unknown]
  - Abdominal tenderness [Unknown]
  - Osteoarthritis [Unknown]
  - Abdominal mass [Unknown]
  - Social problem [Unknown]
  - Impaired work ability [Unknown]
  - Abdominal pain [Unknown]
  - Abdominal distension [Unknown]
  - Arthralgia [Unknown]
  - Fatigue [Unknown]
